FAERS Safety Report 5565799-X (Version None)
Quarter: 2007Q4

REPORT INFORMATION
  Report Type: 
  Country: None (occurrence: None)
  Receive Date: 20071213
  Receipt Date: 20071207
  Transmission Date: 20080405
  Serious: Yes (Life-Threatening, Other)
  Sender: FDA-Public Use
  Company Number: CLOF-10803

PATIENT
  Age: 49 Year
  Sex: Female

DRUGS (10)
  1. CLOFARABINE. MFR GENZYME [Suspect]
     Indication: ACUTE MYELOID LEUKAEMIA
     Dosage: 11.5 MG/M2 GQ X 5; IV
     Route: 042
     Dates: start: 20071029, end: 20071102
  2. PRILOSEC [Concomitant]
  3. SYNTHROID [Concomitant]
  4. WELLBUTRIN [Concomitant]
  5. ACYCLOVIR [Concomitant]
  6. VANTIN [Concomitant]
  7. ITRACONAZOLE [Concomitant]
  8. ATARAX [Concomitant]
  9. DARVON [Concomitant]
  10. COMPAZINE [Concomitant]

REACTIONS (1)
  - BONE MARROW FAILURE [None]
